FAERS Safety Report 6839544-1 (Version None)
Quarter: 2010Q3

REPORT INFORMATION
  Report Type: 
  Country: None (occurrence: None)
  Receive Date: 20100714
  Receipt Date: 20100119
  Transmission Date: 20110219
  Serious: No
  Sender: FDA-Public Use
  Company Number: A0840272A

PATIENT
  Sex: Female

DRUGS (10)
  1. FLOVENT [Suspect]
     Indication: ASTHMA
     Route: 055
     Dates: start: 20090101
  2. METFORMIN HCL [Concomitant]
  3. LASIX [Concomitant]
  4. POTASSIUM [Concomitant]
  5. VERAPAMIL [Concomitant]
  6. LISINOPRIL [Concomitant]
  7. BENICAR [Concomitant]
  8. LANOXIN [Concomitant]
  9. DABIGATRAN [Concomitant]
  10. NEURONTIN [Concomitant]

REACTIONS (2)
  - DYSPNOEA [None]
  - MALAISE [None]
